FAERS Safety Report 10176778 (Version 1)
Quarter: 2014Q2

REPORT INFORMATION
  Report Type: Spontaneous
  Country: IN (occurrence: None)
  Receive Date: 20140514
  Receipt Date: 20140514
  Transmission Date: 20141212
  Serious: Yes (Hospitalization)
  Sender: FDA-Public Use
  Company Number: IPC201404-000208

PATIENT
  Age: 48 Year
  Sex: Male

DRUGS (1)
  1. ALLOPURINOL (ALLOPURINOL) (ALLOPURINOL) [Suspect]
     Indication: ARTHRALGIA
     Route: 048

REACTIONS (3)
  - Drug reaction with eosinophilia and systemic symptoms [None]
  - Toxic epidermal necrolysis [None]
  - Drug prescribing error [None]
